FAERS Safety Report 25543264 (Version 1)
Quarter: 2025Q3

REPORT INFORMATION
  Report Type: Spontaneous
  Country: TR (occurrence: TR)
  Receive Date: 20250711
  Receipt Date: 20250711
  Transmission Date: 20251020
  Serious: Yes (Other)
  Sender: BAXTER
  Company Number: TR-BAXTER-2025BAX018007

PATIENT
  Age: 70 Year
  Sex: Female
  Weight: 55 kg

DRUGS (1)
  1. DOXORUBICIN [Suspect]
     Active Substance: DOXORUBICIN
     Indication: Neoplasm malignant
     Route: 042
     Dates: start: 20250602, end: 20250602

REACTIONS (3)
  - Palpitations [Unknown]
  - Flushing [Unknown]
  - Dyspnoea [Unknown]

NARRATIVE: CASE EVENT DATE: 20250602
